FAERS Safety Report 26071353 (Version 1)
Quarter: 2025Q4

REPORT INFORMATION
  Report Type: Other
  Country: US (occurrence: US)
  Receive Date: 20251120
  Receipt Date: 20251120
  Transmission Date: 20260117
  Serious: Yes (Hospitalization, Other)
  Sender: BRECKENRIDGE PHARMACEUTICAL, INC.
  Company Number: US-Breckenridge Pharmaceutical, Inc.-2188974

PATIENT
  Age: 68 Year
  Sex: Male

DRUGS (7)
  1. APIXABAN [Suspect]
     Active Substance: APIXABAN
     Indication: Anticoagulant therapy
  2. APIXABAN [Suspect]
     Active Substance: APIXABAN
     Indication: Atrial fibrillation
  3. ATORVASTATIN [Concomitant]
     Active Substance: ATORVASTATIN
  4. ALBUTEROL [Concomitant]
     Active Substance: ALBUTEROL
  5. GABAPENTIN [Concomitant]
     Active Substance: GABAPENTIN
  6. CARBIDOPA\LEVODOPA [Concomitant]
     Active Substance: CARBIDOPA\LEVODOPA
  7. HYDROCHLOROTHIAZIDE [Concomitant]
     Active Substance: HYDROCHLOROTHIAZIDE

REACTIONS (9)
  - Cutaneous vasculitis [Recovering/Resolving]
  - Hypotension [Unknown]
  - Chronic obstructive pulmonary disease [Recovering/Resolving]
  - Tachypnoea [Recovering/Resolving]
  - Tachycardia [Unknown]
  - Myalgia [Recovering/Resolving]
  - Purpura [Recovering/Resolving]
  - Petechiae [Recovering/Resolving]
  - Rash pruritic [Recovering/Resolving]
